FAERS Safety Report 9774841 (Version 2)
Quarter: 2013Q4

REPORT INFORMATION
  Report Type: Spontaneous
  Country: US (occurrence: US)
  Receive Date: 20131220
  Receipt Date: 20131231
  Transmission Date: 20140711
  Serious: Yes (Other)
  Sender: FDA-Public Use
  Company Number: 2013SP003637

PATIENT
  Age: 39 Year
  Sex: Female

DRUGS (2)
  1. XOPENEX HFA [Suspect]
     Indication: ASTHMA
     Route: 055
     Dates: start: 20131203, end: 20131213
  2. FLUCONAZOLE [Concomitant]
     Indication: FUNGAL INFECTION
     Dates: start: 20131203

REACTIONS (4)
  - Pulmonary oedema [Recovered/Resolved]
  - Drug ineffective [Unknown]
  - Painful respiration [Recovered/Resolved]
  - Expired drug administered [None]
